FAERS Safety Report 14615891 (Version 2)
Quarter: 2018Q1

REPORT INFORMATION
  Report Type: Report from Study
  Country: JP (occurrence: JP)
  Receive Date: 20180309
  Receipt Date: 20180321
  Transmission Date: 20180509
  Serious: Yes (Other)
  Sender: FDA-Public Use
  Company Number: JP-ROCHE-2086246

PATIENT

DRUGS (6)
  1. CLONAZEPAM. [Suspect]
     Active Substance: CLONAZEPAM
     Indication: INFANTILE SPASMS
     Dosage: DURING MONOTHERAPY, TAPERED TO 0.10 MG
     Route: 065
  2. SODIUM VALPROATE [Suspect]
     Active Substance: VALPROATE SODIUM
     Indication: INFANTILE SPASMS
     Dosage: TAPERED TO 30 TO 60 MG DURING MONOTHERAPY
     Route: 065
  3. CLONAZEPAM. [Suspect]
     Active Substance: CLONAZEPAM
     Indication: LENNOX-GASTAUT SYNDROME
     Dosage: DURING COMBINATION THERAPY, 0.03 TO 0.19 MG (AVERAGE: 0.08) PER KILOGRAM OF BODY WEIGHT PER DAY
     Route: 065
  4. SODIUM VALPROATE [Suspect]
     Active Substance: VALPROATE SODIUM
     Indication: LENNOX-GASTAUT SYNDROME
     Dosage: DURING COMBINATION THERAPY, 20.0 TO 59.7 MG (AVERAGE: 32.8) PER KILOGRAM OF BODY WEIGHT PER DAY
     Route: 065
  5. SODIUM VALPROATE [Suspect]
     Active Substance: VALPROATE SODIUM
     Indication: EPILEPSY
     Dosage: INITIATED WITH MONOTHERAPY WITH DOSE OF 20 TO 30 MG PER KILOGRAM OF BODY WEIGHT PER DAY
     Route: 065
  6. CLONAZEPAM. [Suspect]
     Active Substance: CLONAZEPAM
     Indication: EPILEPSY
     Dosage: DURING MONOTHERAPY, INITIATED WITH ABOVE DOSE
     Route: 065

REACTIONS (8)
  - Dizziness [Recovered/Resolved]
  - Somnolence [Recovered/Resolved]
  - Salivary hypersecretion [Recovered/Resolved]
  - Wheezing [Recovered/Resolved]
  - Seizure [Recovered/Resolved]
  - Thrombocytopenia [Recovered/Resolved]
  - Haemorrhagic diathesis [Recovered/Resolved]
  - Drug ineffective [Unknown]
